FAERS Safety Report 6972395-6 (Version None)
Quarter: 2010Q3

REPORT INFORMATION
  Report Type: 
  Country: None (occurrence: None)
  Receive Date: 20100909
  Receipt Date: 20100830
  Transmission Date: 20110219
  Serious: Yes (Life-Threatening, Hospitalization)
  Sender: FDA-Public Use
  Company Number: NL-JNJFOC-20090702397

PATIENT
  Age: 32 Year
  Sex: Male
  Weight: 87 kg

DRUGS (3)
  1. REMICADE [Suspect]
     Indication: COLITIS ULCERATIVE
     Route: 042
  2. PENTASA [Concomitant]
     Indication: COLITIS ULCERATIVE
     Dosage: FREQUENCY 2  ___?
     Route: 048
  3. IMURAN [Concomitant]
     Indication: COLITIS ULCERATIVE
     Dosage: FREQUENCY 1___?
     Route: 048

REACTIONS (3)
  - CHEST PAIN [None]
  - DEEP VEIN THROMBOSIS [None]
  - PULMONARY EMBOLISM [None]
